FAERS Safety Report 4448933-4 (Version None)
Quarter: 2004Q3

REPORT INFORMATION
  Report Type: 
  Country: None (occurrence: None)
  Receive Date: 20040909
  Receipt Date: 20040831
  Transmission Date: 20050211
  Serious: Yes (Hospitalization, Disabling)
  Sender: FDA-Public Use
  Company Number: TPA2004A01003

PATIENT
  Age: 57 Year
  Sex: Male
  Weight: 97.5234 kg

DRUGS (5)
  1. ACTOS [Suspect]
     Indication: DIABETES MELLITUS NON-INSULIN-DEPENDENT
     Dosage: 10 MG, 1 IN 1 D PER ORAL
     Route: 048
     Dates: start: 19980817, end: 20020817
  2. GLUCOPHAGE XR (METFORMIN HYDROCHLORIDE) [Concomitant]
  3. LIPITOR [Concomitant]
  4. TRICOR [Concomitant]
  5. AMBIEN [Concomitant]

REACTIONS (4)
  - ARTERIAL OCCLUSIVE DISEASE [None]
  - BLINDNESS [None]
  - BONE DISORDER [None]
  - SYNCOPE [None]
